FAERS Safety Report 6604703-X (Version None)
Quarter: 2010Q1

REPORT INFORMATION
  Report Type: 
  Country: None (occurrence: None)
  Receive Date: 20100226
  Receipt Date: 20100222
  Transmission Date: 20100710
  Serious: Yes (Other)
  Sender: FDA-Public Use
  Company Number: DE-ROCHE-686429

PATIENT
  Age: 45 Year
  Sex: Male

DRUGS (3)
  1. BEVACIZUMAB [Suspect]
     Indication: ADRENOCORTICAL CARCINOMA
     Dosage: FORM: INFUSION
     Route: 042
  2. CAPECITABINE [Suspect]
     Indication: ADRENOCORTICAL CARCINOMA
     Dosage: GIVEN FOR 14 DAYS FOLLOWED BY 7 DAYS OF REST
     Route: 048
  3. MITOTANE [Concomitant]
     Dosage: MAXIMUM PLASMA LEVEL: 10.6 MG/L

REACTIONS (1)
  - PALMAR-PLANTAR ERYTHRODYSAESTHESIA SYNDROME [None]
